FAERS Safety Report 8387504 (Version 5)
Quarter: 2014Q1

REPORT INFORMATION
  Report Type: Report from Study
  Country: BR (occurrence: BR)
  Receive Date: 20120202
  Receipt Date: 20140129
  Transmission Date: 20141002
  Serious: Yes (Hospitalization)
  Sender: FDA-Public Use
  Company Number: BR-ROCHE-1035107

PATIENT
  Age: 71 Year
  Sex: Male
  Weight: 70 kg

DRUGS (8)
  1. MABTHERA [Suspect]
     Indication: AUTOIMMUNE DISORDER
     Route: 042
     Dates: start: 20100201, end: 20110909
  2. MABTHERA [Suspect]
     Route: 042
     Dates: start: 20140103
  3. MABTHERA [Suspect]
     Route: 042
     Dates: start: 20140116
  4. DIPYRONE [Concomitant]
  5. CRESTOR [Concomitant]
     Route: 065
  6. PREDNISONE [Concomitant]
     Route: 065
  7. PANTOZOL (BRAZIL) [Concomitant]
     Route: 065
  8. PLAVIX [Concomitant]
     Route: 065

REACTIONS (7)
  - Myocardial infarction [Unknown]
  - Emphysema [Unknown]
  - Arterial occlusive disease [Unknown]
  - Dyspnoea [Recovered/Resolved]
  - Weight decreased [Not Recovered/Not Resolved]
  - Fatigue [Recovered/Resolved]
  - Drug ineffective [Unknown]
